FAERS Safety Report 14705151 (Version 1)
Quarter: 2018Q2

REPORT INFORMATION
  Report Type: Spontaneous
  Country: BR (occurrence: BR)
  Receive Date: 20180402
  Receipt Date: 20180402
  Transmission Date: 20180711
  Serious: Yes (Hospitalization)
  Sender: FDA-Public Use
  Company Number: BR-ALEXION-A201803419

PATIENT
  Age: 2 Year
  Sex: Male
  Weight: 8.99 kg

DRUGS (1)
  1. STRENSIQ [Suspect]
     Active Substance: ASFOTASE ALFA
     Indication: HYPOPHOSPHATASIA
     Dosage: UNK, TIW
     Route: 058
     Dates: start: 20170327

REACTIONS (7)
  - Poor venous access [Unknown]
  - Infection [Unknown]
  - Pyrexia [Unknown]
  - Cough [Unknown]
  - Ocular hyperaemia [Not Recovered/Not Resolved]
  - Fatigue [Unknown]
  - Vomiting [Recovered/Resolved]

NARRATIVE: CASE EVENT DATE: 20180317
